FAERS Safety Report 8387281-7 (Version None)
Quarter: 2012Q2

REPORT INFORMATION
  Report Type: 
  Country: None (occurrence: None)
  Receive Date: 20120525
  Receipt Date: 20120511
  Transmission Date: 20120825
  Serious: Yes (Other)
  Sender: FDA-Public Use
  Company Number: DE-ROCHE-1070220

PATIENT
  Sex: Female
  Weight: 53 kg

DRUGS (3)
  1. AVASTIN [Suspect]
     Indication: BRONCHIAL CARCINOMA
     Dosage: LAST DOSAGE PRIOR TO THE EVENT 23/FEB/2012
     Route: 042
     Dates: start: 20120419
  2. CISPLATIN [Concomitant]
     Indication: BRONCHIAL CARCINOMA
     Route: 042
     Dates: start: 20120419
  3. GEMZAR [Concomitant]
     Indication: BRONCHIAL CARCINOMA
     Route: 042
     Dates: start: 20120419

REACTIONS (2)
  - TUMOUR THROMBOSIS [None]
  - PLEURAL EFFUSION [None]
